FAERS Safety Report 5132454-X (Version None)
Quarter: 2006Q4

REPORT INFORMATION
  Report Type: 
  Country: None (occurrence: None)
  Receive Date: 20061017
  Receipt Date: 20060929
  Transmission Date: 20070319
  Serious: Yes (Hospitalization)
  Sender: FDA-Public Use
  Company Number: 8019374

PATIENT
  Age: 75 Year
  Sex: Female

DRUGS (3)
  1. KEPPRA [Suspect]
     Indication: EPILEPSY
     Dosage: 250 MG /D PO
     Route: 048
     Dates: start: 20060925, end: 20060925
  2. IBUSTRIN /00730702/ [Suspect]
     Indication: TRANSIENT ISCHAEMIC ATTACK
     Dosage: 200 MG /D
     Dates: start: 20060921, end: 20060925
  3. TRIATEC /00885601/ [Suspect]
     Indication: HYPERTENSION
     Dosage: 5 MG /D
     Dates: start: 20060905, end: 20060925

REACTIONS (3)
  - EPILEPSY [None]
  - JAUNDICE [None]
  - TRANSIENT ISCHAEMIC ATTACK [None]
